FAERS Safety Report 25958106 (Version 1)
Quarter: 2025Q4

REPORT INFORMATION
  Report Type: Spontaneous
  Country: EU (occurrence: EU)
  Receive Date: 20251024
  Receipt Date: 20251024
  Transmission Date: 20260118
  Serious: Yes (Death, Other)
  Sender: MYLAN
  Company Number: EU-PFIZER INC-PV202500120049

PATIENT
  Age: 75 Year
  Sex: Male

DRUGS (2)
  1. PACLITAXEL [Suspect]
     Active Substance: PACLITAXEL
     Indication: Chemotherapy
     Dosage: 50 MILLIGRAM/SQ. METER, QW (ON DAYS 1,8,15,22,AND 29)
  2. CARBOPLATIN [Suspect]
     Active Substance: CARBOPLATIN
     Indication: Chemotherapy
     Dosage: 2 MILLIGRAM PER MILLILITRE, QMINUTE

REACTIONS (2)
  - Intestinal ischaemia [Fatal]
  - Multiple organ dysfunction syndrome [Fatal]
